FAERS Safety Report 8176003-0 (Version None)
Quarter: 2012Q1

REPORT INFORMATION
  Report Type: 
  Country: None (occurrence: None)
  Receive Date: 20120301
  Receipt Date: 20120224
  Transmission Date: 20120608
  Serious: No
  Sender: FDA-Public Use
  Company Number: US-PFIZER INC-2012051085

PATIENT

DRUGS (11)
  1. VOLTAREN [Suspect]
     Dosage: UNK
  2. FLEXERIL [Suspect]
     Dosage: UNK
  3. BENADRYL [Suspect]
     Dosage: UNK
  4. PSEUDOEPHEDRINE HYDROCHLORIDE [Suspect]
     Dosage: UNK
  5. PROMETHAZINE HYDROCHLORIDE [Suspect]
     Dosage: UNK
  6. ACETAMINOPHEN [Suspect]
     Dosage: UNK
  7. PROCARDIA [Suspect]
     Dosage: UNK
  8. ROBAXIN [Suspect]
     Dosage: UNK
  9. CODEINE SULFATE [Suspect]
     Dosage: UNK
  10. DIPHENHYDRAMINE CITRATE [Suspect]
  11. ULTRAM [Suspect]
     Dosage: UNK

REACTIONS (3)
  - DRUG HYPERSENSITIVITY [None]
  - NAUSEA [None]
  - VOMITING [None]
